FAERS Safety Report 24997310 (Version 1)
Quarter: 2025Q1

REPORT INFORMATION
  Report Type: Report from Study
  Country: US (occurrence: US)
  Receive Date: 20250221
  Receipt Date: 20250221
  Transmission Date: 20250409
  Serious: Yes (Hospitalization, Other)
  Sender: ABBVIE
  Company Number: US-ABBVIE-5968242

PATIENT
  Age: 43 Year
  Sex: Female
  Weight: 83 kg

DRUGS (13)
  1. HUMIRA [Suspect]
     Active Substance: ADALIMUMAB
     Indication: Hidradenitis
     Dosage: FORM STRENGTH: 40 MICROGRAM
     Route: 058
     Dates: start: 202410
  2. HUMIRA [Suspect]
     Active Substance: ADALIMUMAB
     Dosage: FORM STRENGTH: 40 MILLIGRAM
     Route: 058
     Dates: start: 2022, end: 202408
  3. IBUPROFEN [Concomitant]
     Active Substance: IBUPROFEN
     Indication: Pain
  4. LEVOTHYROXINE [Concomitant]
     Active Substance: LEVOTHYROXINE
     Indication: Hypothyroidism
  5. ADDERALL [Concomitant]
     Active Substance: AMPHETAMINE ASPARTATE\AMPHETAMINE SULFATE\DEXTROAMPHETAMINE SACCHARATE\DEXTROAMPHETAMINE SULFATE
     Indication: Attention deficit hyperactivity disorder
  6. LASIX [Concomitant]
     Active Substance: FUROSEMIDE
     Indication: Joint swelling
  7. GABAPENTIN [Concomitant]
     Active Substance: GABAPENTIN
     Indication: Product used for unknown indication
  8. SLYND [Concomitant]
     Active Substance: DROSPIRENONE
     Indication: Menopausal symptoms
  9. METOPROLOL [Concomitant]
     Active Substance: METOPROLOL
     Indication: Supraventricular tachycardia
  10. BACLOFEN [Concomitant]
     Active Substance: BACLOFEN
     Indication: Muscle spasms
  11. PLAQUENIL [Concomitant]
     Active Substance: HYDROXYCHLOROQUINE SULFATE
     Indication: Systemic lupus erythematosus
  12. CLONAZEPAM [Concomitant]
     Active Substance: CLONAZEPAM
     Indication: Anxiety
  13. OMEPRAZOLE [Concomitant]
     Active Substance: OMEPRAZOLE
     Indication: Impaired gastric emptying

REACTIONS (8)
  - Seroma [Recovered/Resolved]
  - Ligament rupture [Recovering/Resolving]
  - Bone neoplasm [Recovered/Resolved]
  - Bone disorder [Not Recovered/Not Resolved]
  - Psoriasis [Not Recovered/Not Resolved]
  - Inappropriate schedule of product administration [Unknown]
  - Drug ineffective [Unknown]
  - Hidradenitis [Recovering/Resolving]

NARRATIVE: CASE EVENT DATE: 20230601
